FAERS Safety Report 6075325-7 (Version None)
Quarter: 2009Q1

REPORT INFORMATION
  Report Type: 
  Country: None (occurrence: None)
  Receive Date: 20090212
  Receipt Date: 20090206
  Transmission Date: 20090719
  Serious: Yes (Hospitalization, Other)
  Sender: FDA-Public Use
  Company Number: US-ASTRAZENECA-2009UW03522

PATIENT
  Age: 18902 Day
  Sex: Male
  Weight: 127 kg

DRUGS (9)
  1. PULMICORT RESPULES [Suspect]
     Indication: SINUS DISORDER
     Route: 055
     Dates: start: 20070101
  2. COUMADIN [Suspect]
  3. TESTOSTERONE [Suspect]
  4. FLUTICASONE PROPIONATE [Concomitant]
     Indication: SARCOIDOSIS
  5. NEXIUM [Concomitant]
     Indication: GASTROOESOPHAGEAL REFLUX DISEASE
  6. METHOTREXATE [Concomitant]
     Indication: SARCOIDOSIS
  7. PREDNISONE [Concomitant]
     Indication: ADRENAL INSUFFICIENCY
  8. NORVASC [Concomitant]
     Indication: HYPERTENSION
  9. FLUCONAZOLE [Concomitant]
     Indication: MENINGITIS

REACTIONS (2)
  - BLEEDING TIME PROLONGED [None]
  - PULMONARY THROMBOSIS [None]
